FAERS Safety Report 8118225-0 (Version None)
Quarter: 2012Q1

REPORT INFORMATION
  Report Type: 
  Country: None (occurrence: None)
  Receive Date: 20120202
  Receipt Date: 20120119
  Transmission Date: 20120608
  Serious: Yes (Hospitalization, Other)
  Sender: FDA-Public Use
  Company Number: UCM201201-000003

PATIENT
  Age: 60 Year
  Sex: Male

DRUGS (3)
  1. ZOLPIDEM [Suspect]
     Indication: DEPRESSION
  2. ESCITALOPRAM [Suspect]
     Indication: DEPRESSION
  3. MELOXICAM [Suspect]
     Indication: ARTHRITIS

REACTIONS (18)
  - STRESS AT WORK [None]
  - SPEECH DISORDER [None]
  - BLOOD PRESSURE INCREASED [None]
  - RASH [None]
  - NEUTROPHIL COUNT DECREASED [None]
  - HOMICIDAL IDEATION [None]
  - C-REACTIVE PROTEIN INCREASED [None]
  - THERMAL BURN [None]
  - AMNESIA [None]
  - SOMNOLENCE [None]
  - IRRITABILITY [None]
  - RASH ERYTHEMATOUS [None]
  - SUICIDAL IDEATION [None]
  - AGITATION [None]
  - PHYSICAL ASSAULT [None]
  - MAJOR DEPRESSION [None]
  - AGGRESSION [None]
  - LEUKOCYTOSIS [None]
